FAERS Safety Report 7568379-X (Version None)
Quarter: 2011Q2

REPORT INFORMATION
  Report Type: 
  Country: None (occurrence: None)
  Receive Date: 20110623
  Receipt Date: 20110518
  Transmission Date: 20111010
  Serious: Yes (Other)
  Sender: FDA-Public Use
  Company Number: B0720983A

PATIENT
  Sex: Female

DRUGS (2)
  1. XELODA [Concomitant]
     Dosage: 3600MG PER DAY
     Route: 048
     Dates: start: 20110301
  2. TYKERB [Suspect]
     Indication: BREAST CANCER
     Dosage: 1250MG PER DAY
     Route: 048
     Dates: start: 20110301

REACTIONS (2)
  - VISUAL IMPAIRMENT [None]
  - DIARRHOEA [None]
